FAERS Safety Report 19838839 (Version 1)
Quarter: 2021Q3

REPORT INFORMATION
  Report Type: Spontaneous
  Country: US (occurrence: US)
  Receive Date: 20210915
  Receipt Date: 20210915
  Transmission Date: 20211014
  Serious: Yes (Hospitalization)
  Sender: FDA-Public Use
  Company Number: None

PATIENT
  Age: 35 Year
  Sex: Male
  Weight: 105 kg

DRUGS (2)
  1. FENOFIBRATE. [Suspect]
     Active Substance: FENOFIBRATE
     Indication: HYPERTRIGLYCERIDAEMIA
     Route: 048
     Dates: start: 20210911, end: 20210913
  2. LISINOPRIL 10 MG [Concomitant]
     Active Substance: LISINOPRIL

REACTIONS (3)
  - Pancreatitis acute [None]
  - Angioedema [None]
  - Blood triglycerides increased [None]

NARRATIVE: CASE EVENT DATE: 20210913
